FAERS Safety Report 23996192 (Version 1)
Quarter: 2024Q2

REPORT INFORMATION
  Report Type: Spontaneous
  Country: US (occurrence: None)
  Receive Date: 20240620
  Receipt Date: 20240620
  Transmission Date: 20240716
  Serious: Yes (Hospitalization)
  Sender: FDA-Public Use
  Company Number: None

PATIENT
  Age: 71 Year
  Sex: Male
  Weight: 60.8 kg

DRUGS (1)
  1. CISPLATIN [Suspect]
     Active Substance: CISPLATIN

REACTIONS (14)
  - Blood creatinine increased [None]
  - Creatinine renal clearance decreased [None]
  - Hyponatraemia [None]
  - Malnutrition [None]
  - Urinary retention [None]
  - Dizziness [None]
  - Dyspnoea [None]
  - Oxygen saturation decreased [None]
  - Wheezing [None]
  - Therapy cessation [None]
  - Renal disorder [None]
  - Chronic obstructive pulmonary disease [None]
  - Pneumonia [None]
  - Anaemia [None]

NARRATIVE: CASE EVENT DATE: 20240425
